FAERS Safety Report 25763109 (Version 2)
Quarter: 2025Q3

REPORT INFORMATION
  Report Type: Spontaneous
  Country: EU (occurrence: EU)
  Receive Date: 20250904
  Receipt Date: 20250910
  Transmission Date: 20251021
  Serious: Yes (Hospitalization, Other)
  Sender: TAKEDA
  Company Number: EU-ABBVIE-6419979

PATIENT
  Age: 20 Year
  Sex: Male

DRUGS (3)
  1. MESALAMINE [Suspect]
     Active Substance: MESALAMINE
     Indication: Colitis ulcerative
     Dosage: 800 MILLIGRAM, Q4HR
  2. MESALAMINE [Suspect]
     Active Substance: MESALAMINE
     Indication: Strongyloidiasis
  3. MESALAMINE [Suspect]
     Active Substance: MESALAMINE
     Indication: Infection parasitic
     Dosage: UNK, UNK, QD

REACTIONS (2)
  - Myopericarditis [Recovered/Resolved]
  - Drug ineffective [Unknown]
